FAERS Safety Report 21833510 (Version 1)
Quarter: 2023Q1

REPORT INFORMATION
  Report Type: Spontaneous
  Country: FR (occurrence: FR)
  Receive Date: 20230107
  Receipt Date: 20230107
  Transmission Date: 20230417
  Serious: Yes (Other)
  Sender: FDA-Public Use
  Company Number: FR-002147023-NVSC2023FR002102

PATIENT
  Age: 73 Year
  Sex: Female

DRUGS (1)
  1. COSENTYX [Suspect]
     Active Substance: SECUKINUMAB
     Indication: Psoriatic arthropathy
     Dosage: 300 MG, QMO (EVERY 4 WEEKS)
     Route: 065
     Dates: start: 202201

REACTIONS (6)
  - Lyme disease [Unknown]
  - Erythema migrans [Unknown]
  - Fatigue [Unknown]
  - Pyrexia [Unknown]
  - Arthralgia [Unknown]
  - Arthropod bite [Unknown]
